FAERS Safety Report 17654624 (Version 1)
Quarter: 2020Q2

REPORT INFORMATION
  Report Type: Spontaneous
  Country: US (occurrence: US)
  Receive Date: 20200410
  Receipt Date: 20200410
  Transmission Date: 20200713
  Serious: No
  Sender: FDA-Public Use
  Company Number: US-RECORDATI RARE DISEASES-2082614

PATIENT
  Age: 12 Month
  Sex: Female
  Weight: 10.78 kg

DRUGS (1)
  1. CARBAGLU [Suspect]
     Active Substance: CARGLUMIC ACID
     Indication: HYPERGLYCINAEMIA
     Dates: start: 201906

REACTIONS (2)
  - Swelling face [Recovered/Resolved]
  - Periorbital swelling [Recovered/Resolved]
